FAERS Safety Report 8119928-4 (Version None)
Quarter: 2012Q1

REPORT INFORMATION
  Report Type: 
  Country: None (occurrence: None)
  Receive Date: 20120206
  Receipt Date: 20120206
  Transmission Date: 20120608
  Serious: Yes (Other)
  Sender: FDA-Public Use
  Company Number: None

PATIENT
  Sex: Female
  Weight: 113.3993 kg

DRUGS (5)
  1. PERQOCET [Concomitant]
  2. ASPIRIN [Concomitant]
  3. WARFARIN SODIUM [Suspect]
     Indication: THROMBOSIS PROPHYLAXIS
     Dosage: 5 MG PILL NIGHTLY ORAL
     Route: 048
     Dates: start: 20111219, end: 20120113
  4. GLUCOSAMINE CHONDROTIN COMPLEX [Concomitant]
  5. SOFTSTOOL [Concomitant]

REACTIONS (3)
  - VITREOUS DETACHMENT [None]
  - PHOTOPSIA [None]
  - VISUAL IMPAIRMENT [None]
